FAERS Safety Report 25974499 (Version 2)
Quarter: 2025Q4

REPORT INFORMATION
  Report Type: Report from Study
  Country: TH (occurrence: TH)
  Receive Date: 20251029
  Receipt Date: 20251210
  Transmission Date: 20260117
  Serious: Yes (Hospitalization)
  Sender: HELSINN HEALTHCARE
  Company Number: TH-HBP-2025TH032513

PATIENT
  Age: 74 Year

DRUGS (1)
  1. AKYNZEO (FOSNETUPITANT\PALONOSETRON HYDROCHLORIDE) [Suspect]
     Active Substance: FOSNETUPITANT\PALONOSETRON HYDROCHLORIDE
     Indication: Prophylaxis of nausea and vomiting
     Dosage: UNK, UNKNOWN
     Route: 048
     Dates: start: 20250815, end: 20251003

REACTIONS (2)
  - Infection [Unknown]
  - Wound [Unknown]

NARRATIVE: CASE EVENT DATE: 20251003
